FAERS Safety Report 5324500-5 (Version None)
Quarter: 2007Q2

REPORT INFORMATION
  Report Type: 
  Country: None (occurrence: None)
  Receive Date: 20070508
  Receipt Date: 20070426
  Transmission Date: 20071010
  Serious: No
  Sender: FDA-Public Use
  Company Number: 2007AL001694

PATIENT
  Age: 52 Year
  Sex: Female

DRUGS (1)
  1. HYDROCORTISONE 1%-P CREAM [Suspect]
     Indication: DERMATITIS CONTACT
     Dosage: TOP
     Route: 061

REACTIONS (3)
  - EAR DISORDER [None]
  - SKIN ATROPHY [None]
  - TREATMENT NONCOMPLIANCE [None]
